FAERS Safety Report 10151386 (Version 2)
Quarter: 2014Q2

REPORT INFORMATION
  Report Type: Report from Study
  Country: US (occurrence: US)
  Receive Date: 20140503
  Receipt Date: 20140521
  Transmission Date: 20141212
  Serious: Yes (Hospitalization)
  Sender: FDA-Public Use
  Company Number: PHEH2014US008711

PATIENT
  Age: 40 Year
  Sex: Female
  Weight: 54.42 kg

DRUGS (3)
  1. GILENYA [Suspect]
     Indication: MULTIPLE SCLEROSIS
     Dosage: 0.5 MG, QD
     Route: 048
     Dates: start: 20120213, end: 20130705
  2. WELLBUTRIN [Concomitant]
     Indication: DEPRESSION
  3. SERTRALINE [Concomitant]
     Indication: DEPRESSION

REACTIONS (5)
  - Sepsis [Unknown]
  - Partial seizures with secondary generalisation [Recovered/Resolved]
  - Postictal state [Unknown]
  - Urinary tract infection [Unknown]
  - Fatigue [Unknown]
